FAERS Safety Report 8447834-4 (Version None)
Quarter: 2012Q2

REPORT INFORMATION
  Report Type: 
  Country: None (occurrence: None)
  Receive Date: 20120619
  Receipt Date: 20120605
  Transmission Date: 20120825
  Serious: Yes (Other)
  Sender: FDA-Public Use
  Company Number: US-BAYER-2012-056889

PATIENT

DRUGS (1)
  1. SODIUM BICARBONATE [Suspect]
     Indication: HYPERCHLORHYDRIA
     Route: 048

REACTIONS (7)
  - CHEST DISCOMFORT [None]
  - URTICARIA [None]
  - HYPERSENSITIVITY [None]
  - BURNING SENSATION [None]
  - PHARYNGEAL OEDEMA [None]
  - DYSPNOEA [None]
  - PRURITUS [None]
